FAERS Safety Report 10466552 (Version 1)
Quarter: 2014Q3

REPORT INFORMATION
  Report Type: Spontaneous
  Country: US (occurrence: None)
  Receive Date: 20140919
  Receipt Date: 20140919
  Transmission Date: 20150326
  Serious: Yes (Hospitalization)
  Sender: FDA-Public Use
  Company Number: None

PATIENT
  Age: 63 Year
  Sex: Male
  Weight: 95.26 kg

DRUGS (1)
  1. METOPROLOL SUCC ER [Suspect]
     Active Substance: METOPROLOL SUCCINATE
     Indication: BLOOD PRESSURE ABNORMAL
     Dosage: 1 PILL ?ONCE DAILY?TAKEN BY MOUTH
     Route: 048
     Dates: start: 20140905, end: 20140908

REACTIONS (5)
  - Cardiac flutter [None]
  - Bradycardia [None]
  - Product substitution issue [None]
  - Blood pressure decreased [None]
  - Product quality issue [None]

NARRATIVE: CASE EVENT DATE: 20140908
